FAERS Safety Report 17352339 (Version 1)
Quarter: 2020Q1

REPORT INFORMATION
  Report Type: Spontaneous
  Country: ES (occurrence: ES)
  Receive Date: 20200130
  Receipt Date: 20200130
  Transmission Date: 20200409
  Serious: Yes (Hospitalization)
  Sender: FDA-Public Use
  Company Number: ES-TEVA-2020-ES-1176840

PATIENT
  Age: 84 Year
  Sex: Male

DRUGS (1)
  1. ENALAPRIL / HIDROCLOROTIAZIDA 20/12.5 [Suspect]
     Active Substance: ENALAPRIL\HYDROCHLOROTHIAZIDE
     Dosage: 1-0-0; 20/12.5
     Dates: start: 20190904, end: 20191016

REACTIONS (2)
  - Chronic kidney disease [Not Recovered/Not Resolved]
  - Renal tubular necrosis [Recovered/Resolved with Sequelae]

NARRATIVE: CASE EVENT DATE: 20191016
